FAERS Safety Report 6285162-6 (Version None)
Quarter: 2009Q3

REPORT INFORMATION
  Report Type: 
  Country: None (occurrence: None)
  Receive Date: 20090727
  Receipt Date: 20090713
  Transmission Date: 20100115
  Serious: Yes (Hospitalization, Other)
  Sender: FDA-Public Use
  Company Number: PHHY2009CA28466

PATIENT
  Sex: Female

DRUGS (5)
  1. CLOZARIL [Suspect]
     Indication: SCHIZOPHRENIA
     Dosage: 300 MG/DAY
     Route: 048
     Dates: start: 19960101, end: 20090614
  2. DILANTIN [Concomitant]
     Dosage: 100 MG QAM AND 200 MG QHS
  3. HALDOL [Concomitant]
     Dosage: 2.5 MG QAM AND 5 MG QHS
  4. BENZTROPEINE [Concomitant]
     Dosage: 2 MG, BID
  5. PRIMIDONE [Concomitant]
     Dosage: 125 MG, BID

REACTIONS (9)
  - CONSTIPATION [None]
  - DRUG TOXICITY [None]
  - GAIT DISTURBANCE [None]
  - MUSCLE TIGHTNESS [None]
  - MUSCULAR WEAKNESS [None]
  - OEDEMA PERIPHERAL [None]
  - PSYCHOTIC DISORDER [None]
  - SOMNOLENCE [None]
  - THERAPY CESSATION [None]
